FAERS Safety Report 25233386 (Version 1)
Quarter: 2025Q2

REPORT INFORMATION
  Report Type: Spontaneous
  Country: FR (occurrence: FR)
  Receive Date: 20250424
  Receipt Date: 20250424
  Transmission Date: 20250717
  Serious: Yes (Hospitalization, Other)
  Sender: AUROBINDO
  Company Number: FR-AUROBINDO-AUR-APL-2025-020584

PATIENT
  Age: 5 Year
  Sex: Female

DRUGS (6)
  1. VALPROIC ACID [Suspect]
     Active Substance: VALPROIC ACID
     Indication: Intellectual disability
     Route: 065
  2. VALPROIC ACID [Suspect]
     Active Substance: VALPROIC ACID
     Indication: CDKL5 deficiency disorder
  3. CANNABIDIOL [Suspect]
     Active Substance: CANNABIDIOL
     Indication: Intellectual disability
     Route: 065
  4. CANNABIDIOL [Suspect]
     Active Substance: CANNABIDIOL
     Indication: CDKL5 deficiency disorder
  5. CLONIDINE [Concomitant]
     Active Substance: CLONIDINE
     Indication: Intellectual disability
     Route: 065
  6. CLONIDINE [Concomitant]
     Active Substance: CLONIDINE
     Indication: CDKL5 deficiency disorder
     Route: 065

REACTIONS (1)
  - Drug ineffective [Unknown]
